FAERS Safety Report 5779485-4 (Version None)
Quarter: 2008Q2

REPORT INFORMATION
  Report Type: 
  Country: None (occurrence: None)
  Receive Date: 20080619
  Receipt Date: 20080609
  Transmission Date: 20081010
  Serious: Yes (Congenital Anomaly, Other)
  Sender: FDA-Public Use
  Company Number: FR-ELI_LILLY_AND_COMPANY-FR200806001716

PATIENT
  Weight: 1.5 kg

DRUGS (4)
  1. PROZAC [Suspect]
     Indication: DEPRESSION
     Dosage: UNK, UNK
     Route: 064
     Dates: end: 20071224
  2. LEXOMIL [Concomitant]
     Dosage: UNK, UNK
     Route: 064
     Dates: end: 20071224
  3. DITROPAN [Concomitant]
     Dates: end: 20071224
  4. DECTANCYL [Concomitant]
     Dates: end: 20071224

REACTIONS (7)
  - ANAL ATRESIA [None]
  - COARCTATION OF THE AORTA [None]
  - DRUG EXPOSURE DURING PREGNANCY [None]
  - DYSMORPHISM [None]
  - FOETAL GROWTH RETARDATION [None]
  - POOR WEIGHT GAIN NEONATAL [None]
  - PREMATURE BABY [None]
